FAERS Safety Report 6684317-6 (Version None)
Quarter: 2010Q2

REPORT INFORMATION
  Report Type: 
  Country: None (occurrence: None)
  Receive Date: 20100416
  Receipt Date: 20100405
  Transmission Date: 20101027
  Serious: Yes (Other)
  Sender: FDA-Public Use
  Company Number: US-PFIZER INC-2010043058

PATIENT
  Sex: Female
  Weight: 133 kg

DRUGS (14)
  1. GEODON [Suspect]
     Indication: AFFECTIVE DISORDER
     Dosage: 120 MG, 4X/DAY
     Route: 048
     Dates: start: 20090424
  2. GEODON [Suspect]
     Indication: POST-TRAUMATIC STRESS DISORDER
     Dosage: 60 MG, 4X/DAY
     Route: 048
     Dates: start: 20100401
  3. GEODON [Suspect]
     Indication: ATTENTION DEFICIT/HYPERACTIVITY DISORDER
  4. GEODON [Suspect]
     Indication: BORDERLINE PERSONALITY DISORDER
  5. ROPINIROLE HYDROCHLORIDE [Concomitant]
     Dosage: 0.25 MG, 2X/DAY
     Route: 048
     Dates: start: 20100304
  6. BUPROPION HYDROCHLORIDE [Concomitant]
     Dosage: 100 MG, 2X/DAY TABLETS
     Route: 048
     Dates: start: 20100129
  7. CLONAZEPAM [Concomitant]
     Dosage: 1 MG, 4X/DAY
     Route: 048
     Dates: start: 20091113
  8. OMEPRAZOLE [Concomitant]
     Dosage: 20 MG, 1X/DAY
     Route: 048
     Dates: start: 20091022
  9. LEVOTHYROXINE SODIUM [Concomitant]
     Dosage: 300 UG, 1X/DAY
     Dates: start: 20091017
  10. ACETAMINOPHEN AND HYDROCODONE BITARTRATE [Concomitant]
     Dosage: 500/5
     Dates: start: 20091012
  11. IBUPROFEN [Concomitant]
     Dosage: 600 MG, 1X/DAY
     Dates: start: 20091012
  12. LEVOTHROID [Concomitant]
     Dosage: 300 UG, 1X/DAY
     Dates: start: 20091001
  13. AMFETAMINE/DEXAMFETAMINE [Concomitant]
     Dosage: 10 MG, 1X/DAY
     Route: 048
     Dates: start: 20100209
  14. GABAPENTIN [Concomitant]
     Dosage: 600 MG, 2X/DAY
     Route: 048
     Dates: start: 20100304

REACTIONS (1)
  - FURUNCLE [None]
